FAERS Safety Report 9719722 (Version 2)
Quarter: 2014Q1

REPORT INFORMATION
  Report Type: Spontaneous
  Country: PT (occurrence: PT)
  Receive Date: 20131128
  Receipt Date: 20140109
  Transmission Date: 20141002
  Serious: Yes (Other)
  Sender: FDA-Public Use
  Company Number: PT-AMGEN-PRTSP2013083658

PATIENT
  Age: 62 Year
  Sex: Male

DRUGS (3)
  1. ENBREL [Suspect]
     Indication: PSORIATIC ARTHROPATHY
     Dosage: 50 MG, WEEKLY
     Route: 058
     Dates: start: 201005
  2. DAROB [Concomitant]
     Indication: ATRIAL FIBRILLATION
     Dosage: 0.5 DF (80MG), 1X/DAY
  3. SINTROM [Concomitant]
     Dosage: UNK

REACTIONS (1)
  - Squamous cell carcinoma [Recovered/Resolved]
